FAERS Safety Report 6997574-3 (Version None)
Quarter: 2010Q3

REPORT INFORMATION
  Report Type: 
  Country: None (occurrence: None)
  Receive Date: 20100918
  Receipt Date: 20091105
  Transmission Date: 20110219
  Serious: No
  Sender: FDA-Public Use
  Company Number: US-WYE-H12070509

PATIENT
  Sex: Female
  Weight: 81.72 kg

DRUGS (9)
  1. PRISTIQ [Suspect]
     Indication: DEPRESSION
     Route: 048
     Dates: start: 20091001
  2. LEVOTHYROXINE [Concomitant]
  3. CRESTOR [Concomitant]
  4. METFORMIN [Concomitant]
  5. POTASSIUM [Concomitant]
  6. HYDROCHLOROTHIAZIDE [Concomitant]
  7. TRAZODONE HCL [Concomitant]
  8. AMLODIPINE [Concomitant]
  9. ELMIRON [Concomitant]

REACTIONS (1)
  - DRUG INEFFECTIVE [None]
